FAERS Safety Report 16039447 (Version 1)
Quarter: 2019Q1

REPORT INFORMATION
  Report Type: Spontaneous
  Country: ES (occurrence: ES)
  Receive Date: 20190306
  Receipt Date: 20190306
  Transmission Date: 20190418
  Serious: Yes (Other)
  Sender: FDA-Public Use
  Company Number: ES-IMPAX LABORATORIES, LLC-2019-IPXL-00629

PATIENT

DRUGS (2)
  1. PRAZIQUANTEL. [Suspect]
     Active Substance: PRAZIQUANTEL
     Indication: ECHINOCOCCIASIS
     Dosage: UNK
     Route: 065
  2. ALBENZA [Suspect]
     Active Substance: ALBENDAZOLE
     Indication: ECHINOCOCCIASIS
     Dosage: UNK
     Route: 048

REACTIONS (1)
  - Angioedema [Unknown]
